FAERS Safety Report 26216361 (Version 1)
Quarter: 2025Q4

REPORT INFORMATION
  Report Type: Other
  Country: GB (occurrence: GB)
  Receive Date: 20251231
  Receipt Date: 20251231
  Transmission Date: 20260118
  Serious: Yes (Congenital Anomaly, Other)
  Sender: IPCA
  Company Number: None

PATIENT

DRUGS (17)
  1. ACETAMINOPHEN [Suspect]
     Active Substance: ACETAMINOPHEN
     Indication: Product used for unknown indication
     Dosage: UNK, IN 1ST TRIMESTER ONLY
     Route: 065
  2. QUETIAPINE [Suspect]
     Active Substance: QUETIAPINE
     Indication: Product used for unknown indication
     Dosage: 50 MILLIGRAM, HS
     Route: 065
     Dates: start: 20150120
  3. AMOXICILLIN [Suspect]
     Active Substance: AMOXICILLIN
     Indication: Upper respiratory tract infection
     Dosage: 1 DOSAGE FORM, TID
     Route: 065
     Dates: start: 20250925, end: 20251002
  4. FOLIC ACID [Suspect]
     Active Substance: FOLIC ACID
     Indication: Vitamin supplementation
     Dosage: 400 MICROGRAM
     Route: 065
  5. BECLOMETHASONE DIPROPIONATE [Suspect]
     Active Substance: BECLOMETHASONE DIPROPIONATE
     Indication: Adverse drug reaction
     Dosage: 200 MICROGRAM, BID
     Route: 065
     Dates: start: 20240528
  6. DULOXETINE [Suspect]
     Active Substance: DULOXETINE
     Indication: Depression
     Dosage: 60 MILLIGRAM, QD
     Route: 065
     Dates: start: 20230223
  7. MIRTAZAPINE [Suspect]
     Active Substance: MIRTAZAPINE
     Indication: Depression
     Dosage: 45 MILLIGRAM, HS
     Route: 065
     Dates: start: 20220615
  8. CHOLECALCIFEROL [Suspect]
     Active Substance: CHOLECALCIFEROL
     Indication: Pregnancy
     Dosage: 400 UNIT, QD
     Route: 065
     Dates: start: 20250320
  9. ENOXAPARIN SODIUM [Suspect]
     Active Substance: ENOXAPARIN SODIUM
     Indication: Pregnancy with advanced maternal age
     Dosage: 40 MILLIGRAM, QD, IN 2ND AND 3RD TRIMESTERS
     Route: 065
     Dates: start: 20250514
  10. LACTULOSE [Suspect]
     Active Substance: LACTULOSE
     Indication: Constipation
     Dosage: 2.5 MILLILITER, BID
     Route: 065
     Dates: start: 20250409
  11. POLYETHYLENE GLYCOLS [Suspect]
     Active Substance: POLYETHYLENE GLYCOLS
     Indication: Constipation
     Dosage: UNK, QD, 1-2 SACHETS DAILYIN 2ND AND 3RD TRIMESTERS
     Route: 065
     Dates: start: 20250409
  12. DISODIUM HYDROGEN CITRATE\SODIUM LAURYL SULFATE [Suspect]
     Active Substance: DISODIUM HYDROGEN CITRATE\SODIUM LAURYL SULFATE
     Indication: Constipation
     Dosage: 1 DOSAGE FORM, PRN, 1 AS NEEDED RECTALLY3RD TRIMESTER ONLY
     Route: 054
     Dates: start: 20250807
  13. OMEPRAZOLE [Suspect]
     Active Substance: OMEPRAZOLE
     Indication: Product used for unknown indication
     Dosage: 40 MILLIGRAM, QD
     Route: 065
     Dates: start: 20240731
  14. SENNA [Suspect]
     Active Substance: SENNOSIDES
     Indication: Constipation
     Dosage: 15 MILLIGRAM, HS, 15MG AT NIGHT WHEN NEEDEDIN 1ST AND 3RD TRIMESTER
     Route: 065
     Dates: start: 20240731
  15. ALBUTEROL [Suspect]
     Active Substance: ALBUTEROL
     Indication: Adverse drug reaction
     Dosage: 2 DOSAGE FORM, PRN, 2 PUFFS PRN
     Dates: start: 20240528
  16. CLOTRIMAZOLE [Suspect]
     Active Substance: CLOTRIMAZOLE
     Indication: Vulvovaginal candidiasis
     Dosage: 200 MILLIGRAM, HS, 200MG AT NIGHT FOR 6 NIGHTSIN 2ND AND 3RD TRIMESTERS
     Route: 065
     Dates: start: 20250804, end: 20250811
  17. NITROFURANTOIN [Suspect]
     Active Substance: NITROFURANTOIN
     Indication: Product used for unknown indication
     Dosage: UNK, IN 1ST TRIMESTER ONLY
     Route: 065

REACTIONS (2)
  - Cleft palate [Not Recovered/Not Resolved]
  - Foetal exposure during pregnancy [Unknown]

NARRATIVE: CASE EVENT DATE: 20251101
